FAERS Safety Report 14485558 (Version 2)
Quarter: 2018Q1

REPORT INFORMATION
  Report Type: Spontaneous
  Country: MX (occurrence: MX)
  Receive Date: 20180205
  Receipt Date: 20180209
  Transmission Date: 20180509
  Serious: Yes (Death)
  Sender: FDA-Public Use
  Company Number: MX-ACTELION-A-CH2018-166962

PATIENT
  Age: 78 Year
  Sex: Male

DRUGS (6)
  1. ZEPENDO [Suspect]
     Active Substance: MACITENTAN
     Indication: PULMONARY ARTERIAL HYPERTENSION
     Dosage: 10 MG, OD
     Route: 048
     Dates: start: 20170529, end: 20180126
  2. DABIGATRAN [Concomitant]
     Active Substance: DABIGATRAN
     Dosage: 75 MG, OD
     Route: 048
     Dates: end: 201801
  3. IPRATROPIUM/ALBUTEROL [Concomitant]
     Active Substance: ALBUTEROL\IPRATROPIUM
     Dosage: 3 SHOTS PER DAY
     Dates: start: 2009, end: 201801
  4. ENOXAPARIN [Concomitant]
     Active Substance: ENOXAPARIN
     Dosage: 40 MG, OD
     Route: 058
     Dates: end: 201801
  5. FINASTERIDE. [Concomitant]
     Active Substance: FINASTERIDE
     Dosage: 5 MG, OD
     Route: 048
     Dates: start: 2009, end: 201801
  6. SILDENAFIL. [Concomitant]
     Active Substance: SILDENAFIL
     Dosage: 50 MG, BID
     Route: 048
     Dates: start: 2012, end: 201801

REACTIONS (2)
  - Multiple organ dysfunction syndrome [Fatal]
  - Pneumonia [Fatal]
